FAERS Safety Report 6099207-X (Version None)
Quarter: 2009Q1

REPORT INFORMATION
  Report Type: 
  Country: None (occurrence: None)
  Receive Date: 20090225
  Receipt Date: 20090225
  Transmission Date: 20090719
  Serious: Yes (Hospitalization)
  Sender: FDA-Public Use
  Company Number: None

PATIENT
  Sex: Female
  Weight: 49.1 kg

DRUGS (2)
  1. ERLOTINIB 150MG GENETECH [Suspect]
     Indication: NON-SMALL CELL LUNG CANCER
     Dosage: 150MG, ORALLY QD
     Route: 048
     Dates: start: 20090203, end: 20090222
  2. DASATINIB 140MG. BRISTOL-MYERS SQUIBB [Suspect]
     Indication: NON-SMALL CELL LUNG CANCER
     Dosage: 140MG. ORALLY QD
     Route: 048
     Dates: start: 20090211, end: 20090222

REACTIONS (2)
  - DYSPNOEA [None]
  - INFLUENZA [None]
